FAERS Safety Report 7757888-6 (Version None)
Quarter: 2011Q3

REPORT INFORMATION
  Report Type: 
  Country: None (occurrence: None)
  Receive Date: 20110918
  Receipt Date: 20110906
  Transmission Date: 20111222
  Serious: Yes (Death)
  Sender: FDA-Public Use
  Company Number: US-BRISTOL-MYERS SQUIBB COMPANY-16065773

PATIENT

DRUGS (4)
  1. DEXAMETHASONE [Concomitant]
  2. CISPLATIN [Suspect]
     Indication: MALIGNANT GLIOMA
     Dosage: 1DF:60-90 MG/SQ.M OVER 10-15 MIN.
     Route: 013
  3. CARMUSTINE [Suspect]
     Indication: MALIGNANT GLIOMA
     Dosage: ON DAYS 1 AND 2.
     Route: 042
  4. MANNITOL [Concomitant]
     Indication: MALIGNANT GLIOMA
     Dosage: 30 MINUTES

REACTIONS (2)
  - LEUKOPENIA [None]
  - BACTERIAL SEPSIS [None]
